FAERS Safety Report 17067898 (Version 2)
Quarter: 2019Q4

REPORT INFORMATION
  Report Type: Spontaneous
  Country: US (occurrence: US)
  Receive Date: 20191122
  Receipt Date: 20191125
  Transmission Date: 20200122
  Serious: Yes (Death, Life-Threatening)
  Sender: FDA-Public Use
  Company Number: US-TEVA-2019-US-1141965

PATIENT
  Sex: Female

DRUGS (2)
  1. AMIODARONE HYDROCHLORIDE. [Suspect]
     Active Substance: AMIODARONE HYDROCHLORIDE
     Indication: ATRIAL FIBRILLATION
     Route: 048
  2. AMIODARONE HYDROCHLORIDE TEVA [Suspect]
     Active Substance: AMIODARONE HYDROCHLORIDE
     Indication: ATRIAL FIBRILLATION
     Route: 048

REACTIONS (10)
  - Asthenia [Unknown]
  - Off label use [Unknown]
  - Acute kidney injury [Fatal]
  - Abdominal pain [Unknown]
  - Pancreatitis acute [Fatal]
  - Hepatotoxicity [Unknown]
  - Dyspnoea [Unknown]
  - Drug-induced liver injury [Fatal]
  - Renal impairment [Unknown]
  - Exocrine pancreatic function test abnormal [Unknown]

NARRATIVE: CASE EVENT DATE: 201501
